FAERS Safety Report 9791755 (Version 5)
Quarter: 2014Q2

REPORT INFORMATION
  Report Type: Spontaneous
  Country: JP (occurrence: JP)
  Receive Date: 20140102
  Receipt Date: 20140519
  Transmission Date: 20141212
  Serious: Yes (Death, Other)
  Sender: FDA-Public Use
  Company Number: JP-JNJFOC-20131216660

PATIENT
  Sex: Male

DRUGS (4)
  1. RISPERDAL CONSTA [Suspect]
     Indication: SCHIZOPHRENIA
     Route: 030
     Dates: start: 201204, end: 20121104
  2. RISPERDAL [Suspect]
     Indication: SCHIZOPHRENIA
     Route: 048
     Dates: start: 201204, end: 20121104
  3. TASMOLIN [Concomitant]
     Route: 048
     Dates: start: 201204, end: 20121104
  4. AMOBAN [Concomitant]
     Route: 048
     Dates: start: 201204, end: 20121104

REACTIONS (3)
  - Sudden cardiac death [Fatal]
  - Cardiac hypertrophy [Unknown]
  - Arrhythmia [Unknown]
